FAERS Safety Report 13391907 (Version 1)
Quarter: 2017Q1

REPORT INFORMATION
  Report Type: Spontaneous
  Country: US (occurrence: US)
  Receive Date: 20170331
  Receipt Date: 20170331
  Transmission Date: 20170429
  Serious: No
  Sender: FDA-Public Use
  Company Number: US-ELI_LILLY_AND_COMPANY-US201008004450

PATIENT
  Age: 48 Year
  Sex: Female
  Weight: 66.67 kg

DRUGS (7)
  1. NITROFURANTOIN. [Concomitant]
     Active Substance: NITROFURANTOIN
  2. CYMBALTA [Suspect]
     Active Substance: DULOXETINE HYDROCHLORIDE
     Dosage: 30 MG, QD
     Route: 065
  3. CYMBALTA [Suspect]
     Active Substance: DULOXETINE HYDROCHLORIDE
     Indication: PRODUCT USED FOR UNKNOWN INDICATION
     Dosage: 60 MG, QD
     Route: 065
  4. ST. JOHN^S WORT                    /01166801/ [Concomitant]
     Active Substance: ST. JOHN^S WORT
  5. ACIDOPHILUS [Concomitant]
     Active Substance: LACTOBACILLUS ACIDOPHILUS
  6. DIAZEPAM. [Concomitant]
     Active Substance: DIAZEPAM
  7. DIGESTIVE CARE DAILY PROBIOTIC [Concomitant]

REACTIONS (7)
  - Drug withdrawal syndrome [Unknown]
  - Headache [Unknown]
  - Stress [Unknown]
  - Abdominal pain upper [Recovering/Resolving]
  - Anxiety [Unknown]
  - Pruritus [Recovering/Resolving]
  - Diarrhoea [Recovered/Resolved]
